FAERS Safety Report 5441171-8 (Version None)
Quarter: 2007Q3

REPORT INFORMATION
  Report Type: 
  Country: None (occurrence: None)
  Receive Date: 20070901
  Receipt Date: 20070820
  Transmission Date: 20080115
  Serious: Yes (Hospitalization, Other)
  Sender: FDA-Public Use
  Company Number: US-PFIZER INC-2007069476

PATIENT
  Sex: Male
  Weight: 64.4 kg

DRUGS (7)
  1. CELEBREX [Suspect]
     Indication: ANXIETY
  2. METOPROLOL SUCCINATE [Concomitant]
     Indication: CARDIAC DISORDER
  3. HYDROCHLOROTHIAZIDE [Concomitant]
     Indication: CARDIAC DISORDER
  4. ALLERGY MEDICATION [Concomitant]
  5. ALL OTHER THERAPEUTIC PRODUCTS [Concomitant]
  6. CLOBETASOL PROPIONATE [Concomitant]
     Indication: PSORIASIS
  7. LACTOSE [Concomitant]
     Indication: GASTRIC DISORDER

REACTIONS (7)
  - CARDIAC VALVE DISEASE [None]
  - GASTROINTESTINAL DISORDER [None]
  - HEADACHE [None]
  - INSOMNIA [None]
  - MYOCARDIAL INFARCTION [None]
  - PAIN [None]
  - WEIGHT DECREASED [None]
